APPROVED DRUG PRODUCT: FLUOROPLEX
Active Ingredient: FLUOROURACIL
Strength: 1%
Dosage Form/Route: CREAM;TOPICAL
Application: N016988 | Product #001
Applicant: CHARTWELL RX SCIENCES LLC
Approved: Approved Prior to Jan 1, 1982 | RLD: Yes | RS: No | Type: DISCN